FAERS Safety Report 8022521-5 (Version None)
Quarter: 2012Q1

REPORT INFORMATION
  Report Type: 
  Country: None (occurrence: None)
  Receive Date: 20120104
  Receipt Date: 20111221
  Transmission Date: 20120608
  Serious: Yes (Death, Hospitalization)
  Sender: FDA-Public Use
  Company Number: US-GLAXOSMITHKLINE-A0901462A

PATIENT
  Age: 72 Year
  Sex: Female
  Weight: 64.1 kg

DRUGS (9)
  1. PROCRIT [Concomitant]
  2. ADALAT [Concomitant]
  3. ZOCOR [Concomitant]
  4. GLUCOTROL [Concomitant]
  5. LANTUS [Concomitant]
  6. CLONIDINE [Concomitant]
  7. NIFEREX [Concomitant]
  8. TENORMIN [Concomitant]
  9. AVANDIA [Suspect]
     Indication: DIABETES MELLITUS
     Dosage: 4MG TWICE PER DAY
     Route: 048
     Dates: start: 19990101, end: 20051001

REACTIONS (5)
  - DEATH [None]
  - MYOCARDIAL INFARCTION [None]
  - RENAL FAILURE [None]
  - CARDIAC FAILURE CONGESTIVE [None]
  - HYPERTENSION [None]
